FAERS Safety Report 26187564 (Version 2)
Quarter: 2025Q4

REPORT INFORMATION
  Report Type: Spontaneous
  Country: CN (occurrence: CN)
  Receive Date: 20251222
  Receipt Date: 20251231
  Transmission Date: 20260118
  Serious: Yes (Other)
  Sender: NOVARTIS
  Company Number: CN-002147023-NVSC2025CN194003

PATIENT
  Age: 79 Year
  Sex: Male
  Weight: 65 kg

DRUGS (3)
  1. SACUBITRIL\VALSARTAN [Suspect]
     Active Substance: SACUBITRIL\VALSARTAN
     Indication: Hypertension
     Dosage: 0.1 G, QD
     Route: 048
     Dates: start: 20251122, end: 20251130
  2. BUMETANIDE [Suspect]
     Active Substance: BUMETANIDE
     Indication: Cardiac failure
     Dosage: 1 MG, QD
     Route: 042
     Dates: start: 20251130, end: 20251130
  3. FELODIPINE [Suspect]
     Active Substance: FELODIPINE
     Indication: Hypertension
     Dosage: 5 MG, QD
     Route: 048
     Dates: start: 20251122, end: 20251130

REACTIONS (2)
  - Hypotension [Recovered/Resolved]
  - Oliguria [Unknown]

NARRATIVE: CASE EVENT DATE: 20251130
